FAERS Safety Report 8510233-0 (Version None)
Quarter: 2012Q3

REPORT INFORMATION
  Report Type: 
  Country: None (occurrence: None)
  Receive Date: 20120713
  Receipt Date: 20120709
  Transmission Date: 20120928
  Serious: Yes (Other)
  Sender: FDA-Public Use
  Company Number: US-PFIZER INC-2012138669

PATIENT
  Sex: Female
  Weight: 60.317 kg

DRUGS (6)
  1. PREMARIN [Suspect]
     Dosage: UNK
     Route: 067
  2. ACETYLSALICYLIC ACID [Concomitant]
     Dosage: UNK
  3. PREMARIN [Suspect]
     Indication: VAGINAL HAEMORRHAGE
     Dosage: UNK, 2X/WEEK
     Route: 067
  4. PREMARIN [Suspect]
     Indication: SKIN ODOUR ABNORMAL
     Dosage: UNK, DAILY
     Route: 067
     Dates: start: 20111001
  5. PREMARIN [Suspect]
     Indication: HORMONE REPLACEMENT THERAPY
     Dosage: UNK, AS NEEDED
     Route: 067
     Dates: start: 19740101
  6. DIOVAN [Concomitant]
     Indication: HYPERTENSION
     Dosage: UNK

REACTIONS (10)
  - HEADACHE [None]
  - DIZZINESS [None]
  - DRUG INEFFECTIVE [None]
  - ASTHENIA [None]
  - FEELING ABNORMAL [None]
  - MALAISE [None]
  - HYPERHIDROSIS [None]
  - CATARACT [None]
  - INSOMNIA [None]
  - WEIGHT DECREASED [None]
